FAERS Safety Report 9560139 (Version 1)
Quarter: 2013Q3

REPORT INFORMATION
  Report Type: Report from Study
  Country: US (occurrence: US)
  Receive Date: 20130927
  Receipt Date: 20130927
  Transmission Date: 20140515
  Serious: Yes (Hospitalization)
  Sender: FDA-Public Use
  Company Number: US-ROCHE-1281904

PATIENT
  Sex: Male

DRUGS (4)
  1. XOLAIR [Suspect]
     Indication: ASTHMA
     Route: 065
  2. ALBUTEROL SULFATE [Concomitant]
     Dosage: 2.5MG/3ML PRN FOR 30 DAYS
     Route: 065
  3. SINGULAR [Concomitant]
     Dosage: 1 TABLET AT NIGHT TIME FOR 30 DAYS
     Route: 065
  4. ADDERALL [Concomitant]
     Dosage: 30 DAYS
     Route: 065

REACTIONS (1)
  - Asthma [Unknown]
